FAERS Safety Report 17890476 (Version 2)
Quarter: 2020Q3

REPORT INFORMATION
  Report Type: Spontaneous
  Country: US (occurrence: US)
  Receive Date: 20200612
  Receipt Date: 20200702
  Transmission Date: 20201103
  Serious: No
  Sender: FDA-Public Use
  Company Number: US-009507513-2006USA002107

PATIENT
  Age: 55 Year
  Sex: Female

DRUGS (6)
  1. KEYTRUDA [Suspect]
     Active Substance: PEMBROLIZUMAB
     Dosage: UNK UNK, CYCLICAL (8TH CYCLE OF TREATMENT)
  2. APG 115 [Suspect]
     Active Substance: APG-115
     Indication: OVARIAN CANCER
     Dosage: 100 MILLIGRAM, CYCLICAL (4TH CYCLE OF TREATMENT)
  3. KEYTRUDA [Suspect]
     Active Substance: PEMBROLIZUMAB
     Dosage: UNK UNK, CYCLICAL (25TH CYCLE OF TREATMENT)
  4. APG 115 [Suspect]
     Active Substance: APG-115
     Dosage: 100 MILLIGRAM, CYCLICAL (8TH CYCLE OF TREATMENT)
  5. APG 115 [Suspect]
     Active Substance: APG-115
     Dosage: 100 MILLIGRAM, CYCLICAL (25TH CYCLE OF TREATMENT)
  6. KEYTRUDA [Suspect]
     Active Substance: PEMBROLIZUMAB
     Indication: OVARIAN CANCER
     Dosage: UNK, CYCLICAL (4TH CYCLE OF TREATMENT)

REACTIONS (1)
  - Therapy partial responder [Recovered/Resolved]
